FAERS Safety Report 17440619 (Version 1)
Quarter: 2020Q1

REPORT INFORMATION
  Report Type: Spontaneous
  Country: US (occurrence: US)
  Receive Date: 20200220
  Receipt Date: 20200220
  Transmission Date: 20200409
  Serious: Yes (Other)
  Sender: FDA-Public Use
  Company Number: US-PFIZER INC-2020064781

PATIENT
  Sex: Female

DRUGS (3)
  1. DACARBAZINE. [Suspect]
     Active Substance: DACARBAZINE
     Indication: PITUITARY TUMOUR BENIGN
     Dosage: UNK
  2. VINCRISTINE SULFATE. [Suspect]
     Active Substance: VINCRISTINE SULFATE
     Indication: PITUITARY TUMOUR BENIGN
     Dosage: UNK
  3. CYCLOPHOSPHAMIDE. [Suspect]
     Active Substance: CYCLOPHOSPHAMIDE
     Indication: PITUITARY TUMOUR BENIGN
     Dosage: UNK

REACTIONS (1)
  - Neutropenic sepsis [Recovered/Resolved]
